FAERS Safety Report 9149271 (Version 1)
Quarter: 2013Q1

REPORT INFORMATION
  Report Type: Spontaneous
  Country: US (occurrence: US)
  Receive Date: 20130308
  Receipt Date: 20130308
  Transmission Date: 20140127
  Serious: Yes (Other)
  Sender: FDA-Public Use
  Company Number: US-PFIZER INC-2013075534

PATIENT
  Age: 77 Year
  Sex: Female
  Weight: 123 kg

DRUGS (6)
  1. INDERAL [Suspect]
     Indication: HYPERTENSION
     Dosage: 120 MG, DAILY
  2. MYRBETRIQ [Suspect]
     Indication: HYPERTONIC BLADDER
     Dosage: 25 MG, ONCE DAILY(UID/QD)
     Route: 048
     Dates: start: 201212
  3. PROPRANOLOL [Concomitant]
  4. GLYBURIDE [Concomitant]
  5. OMEGA 3 FISH OIL [Concomitant]
  6. VITAMIN D [Concomitant]

REACTIONS (3)
  - Hypotension [Recovered/Resolved]
  - Heart rate increased [Unknown]
  - Palpitations [Unknown]
